FAERS Safety Report 5039420-3 (Version None)
Quarter: 2006Q2

REPORT INFORMATION
  Report Type: 
  Country: None (occurrence: None)
  Receive Date: 20060623
  Receipt Date: 20060612
  Transmission Date: 20061013
  Serious: Yes (Hospitalization, Disabling, Other)
  Sender: FDA-Public Use
  Company Number: 2006075375

PATIENT
  Sex: Male

DRUGS (2)
  1. CELEBREX [Suspect]
     Indication: BACK PAIN
     Dosage: 200 MG (200 MG, 1 IN 1 D),
     Dates: start: 19990302, end: 20010601
  2. CELEBREX [Suspect]
     Indication: PAIN IN EXTREMITY
     Dosage: 200 MG (200 MG, 1 IN 1 D),
     Dates: start: 19990302, end: 20010601

REACTIONS (10)
  - ANGINA PECTORIS [None]
  - BLOOD CHOLESTEROL INCREASED [None]
  - BLOOD PRESSURE INCREASED [None]
  - CORONARY ARTERY DISEASE [None]
  - ERECTILE DYSFUNCTION [None]
  - GASTROOESOPHAGEAL REFLUX DISEASE [None]
  - INTERMITTENT CLAUDICATION [None]
  - MOBILITY DECREASED [None]
  - MYOCARDIAL INFARCTION [None]
  - PERIPHERAL ARTERIAL OCCLUSIVE DISEASE [None]
